FAERS Safety Report 6346729-X (Version None)
Quarter: 2009Q3

REPORT INFORMATION
  Report Type: 
  Country: None (occurrence: None)
  Receive Date: 20090904
  Receipt Date: 20090824
  Transmission Date: 20100115
  Serious: Yes (Hospitalization)
  Sender: FDA-Public Use
  Company Number: 1000007686

PATIENT
  Age: 35 Year
  Sex: Female

DRUGS (1)
  1. CITALOPRAM HYDROBROMIDE [Suspect]
     Indication: DEPRESSION
     Dosage: (20 MG,ONCE),ORAL
     Route: 048
     Dates: start: 20081210, end: 20081210

REACTIONS (6)
  - CHILLS [None]
  - DIZZINESS [None]
  - NAUSEA [None]
  - RESTLESSNESS [None]
  - VISION BLURRED [None]
  - VOMITING [None]
